FAERS Safety Report 24073716 (Version 1)
Quarter: 2024Q3

REPORT INFORMATION
  Report Type: Spontaneous
  Country: IT (occurrence: IT)
  Receive Date: 20240710
  Receipt Date: 20240710
  Transmission Date: 20241016
  Serious: Yes (Life-Threatening, Hospitalization, Other)
  Sender: JUBILANT
  Company Number: None

PATIENT
  Age: 57 Year
  Sex: Female

DRUGS (2)
  1. PAROXETINE [Interacting]
     Active Substance: PAROXETINE
     Indication: Antidepressant therapy
     Dosage: UNK,  UNK
     Route: 065
  2. AMIODARONE [Interacting]
     Active Substance: AMIODARONE
     Indication: Atrial fibrillation
     Dosage: UNK,  UNK
     Route: 048

REACTIONS (6)
  - Electrocardiogram QT prolonged [Unknown]
  - Drug interaction [Unknown]
  - Ventricular fibrillation [Unknown]
  - Cardiac arrest [Unknown]
  - Ventricular extrasystoles [Unknown]
  - Torsade de pointes [Unknown]

NARRATIVE: CASE EVENT DATE: 20230101
